FAERS Safety Report 16843717 (Version 1)
Quarter: 2019Q3

REPORT INFORMATION
  Report Type: Spontaneous
  Country: US (occurrence: US)
  Receive Date: 20190802
  Receipt Date: 20190802
  Transmission Date: 20191005
  Serious: Yes (Hospitalization)
  Sender: FDA-Public Use
  Company Number: None

PATIENT
  Age: 64 Year
  Sex: Male

DRUGS (9)
  1. PEG [Concomitant]
     Active Substance: POLYETHYLENE GLYCOLS
  2. SILDENAFIL. [Concomitant]
     Active Substance: SILDENAFIL
  3. BUMETANIDE. [Concomitant]
     Active Substance: BUMETANIDE
  4. WARFARIN [Concomitant]
     Active Substance: WARFARIN
  5. LISINOPRIL. [Concomitant]
     Active Substance: LISINOPRIL
  6. METOPROLOL. [Concomitant]
     Active Substance: METOPROLOL
  7. PRAVASTATIN. [Concomitant]
     Active Substance: PRAVASTATIN
  8. WARFARIN [Suspect]
     Active Substance: WARFARIN
     Indication: ATRIAL FIBRILLATION
     Route: 048
     Dates: start: 20160909, end: 20190225
  9. SUCCINATE [Concomitant]

REACTIONS (5)
  - Occult blood positive [None]
  - Haemoglobin decreased [None]
  - Haemoptysis [None]
  - Haematemesis [None]
  - International normalised ratio increased [None]

NARRATIVE: CASE EVENT DATE: 20190225
